FAERS Safety Report 13540112 (Version 3)
Quarter: 2017Q2

REPORT INFORMATION
  Report Type: Spontaneous
  Country: US (occurrence: US)
  Receive Date: 20170512
  Receipt Date: 20170602
  Transmission Date: 20170830
  Serious: Yes (Other)
  Sender: FDA-Public Use
  Company Number: US-GLAXOSMITHKLINE-US2017GSK069583

PATIENT
  Age: 69 Year
  Sex: Female

DRUGS (2)
  1. LAMICTAL [Suspect]
     Active Substance: LAMOTRIGINE
     Indication: SEIZURE
     Dosage: 25 MG, UNK
     Dates: start: 19970501
  2. LAMICTAL [Suspect]
     Active Substance: LAMOTRIGINE
     Indication: EPILEPSY
     Dosage: 200 MG, UNK
     Dates: start: 19970501

REACTIONS (6)
  - Surgery [Unknown]
  - Dysgraphia [Unknown]
  - Fall [Unknown]
  - Procedural complication [Unknown]
  - Cervical vertebral fracture [Unknown]
  - Nerve injury [Unknown]

NARRATIVE: CASE EVENT DATE: 201602
